FAERS Safety Report 20197501 (Version 1)
Quarter: 2021Q4

REPORT INFORMATION
  Report Type: Spontaneous
  Country: US (occurrence: US)
  Receive Date: 20211217
  Receipt Date: 20211217
  Transmission Date: 20220303
  Serious: No
  Sender: FDA-Public Use
  Company Number: US-PACIRA-2021000296

PATIENT
  Age: 73 Year
  Sex: Female
  Weight: 103 kg

DRUGS (2)
  1. EXPAREL [Suspect]
     Active Substance: BUPIVACAINE
     Dosage: MIXED 20ML WITH 20ML OF LIDOCAINE
     Route: 065
     Dates: start: 20210519, end: 20210519
  2. LIDOCAINE [Suspect]
     Active Substance: LIDOCAINE
     Dosage: MIXED 20ML WITH 20ML OF EXPAREL
     Route: 065
     Dates: start: 20210519, end: 20210519

REACTIONS (2)
  - Labelled drug-drug interaction medication error [Recovered/Resolved]
  - No adverse event [Unknown]

NARRATIVE: CASE EVENT DATE: 20210519
